FAERS Safety Report 14667367 (Version 2)
Quarter: 2018Q4

REPORT INFORMATION
  Report Type: Spontaneous
  Country: FR (occurrence: FR)
  Receive Date: 20180322
  Receipt Date: 20181025
  Transmission Date: 20190204
  Serious: Yes (Other)
  Sender: FDA-Public Use
  Company Number: FR-MERCK KGAA-2044286

PATIENT
  Age: 34 Year
  Sex: Female

DRUGS (1)
  1. EUTHYROX [Suspect]
     Active Substance: LEVOTHYROXINE SODIUM
     Indication: PRODUCT USED FOR UNKNOWN INDICATION

REACTIONS (12)
  - Crying [None]
  - Dizziness [None]
  - Hypokinesia [None]
  - Irritability [None]
  - Social avoidant behaviour [None]
  - Depression [None]
  - Musculoskeletal disorder [None]
  - Alopecia [None]
  - Fatigue [None]
  - Insomnia [None]
  - Vertigo [None]
  - Feeling abnormal [None]
